FAERS Safety Report 20802563 (Version 1)
Quarter: 2022Q2

REPORT INFORMATION
  Report Type: Spontaneous
  Country: US (occurrence: None)
  Receive Date: 20220509
  Receipt Date: 20220509
  Transmission Date: 20220721
  Serious: No
  Sender: FDA-Public Use
  Company Number: None

PATIENT
  Age: 58 Year
  Sex: Female

DRUGS (1)
  1. CUVITRU [Suspect]
     Active Substance: HUMAN IMMUNOGLOBULIN G
     Dosage: FREQUENCY : EVERY OTHER WEEK;?
     Route: 058
     Dates: start: 20220210

REACTIONS (5)
  - Diarrhoea [None]
  - Muscle spasms [None]
  - Haemorrhage [None]
  - Product quality issue [None]
  - Illness [None]

NARRATIVE: CASE EVENT DATE: 20220210
